FAERS Safety Report 15386426 (Version 2)
Quarter: 2018Q4

REPORT INFORMATION
  Report Type: Report from Study
  Country: PH (occurrence: PH)
  Receive Date: 20180914
  Receipt Date: 20181017
  Transmission Date: 20190204
  Serious: Yes (Other)
  Sender: FDA-Public Use
  Company Number: PHHY2018PH096065

PATIENT
  Age: 46 Year
  Sex: Male

DRUGS (2)
  1. TASIGNA [Suspect]
     Active Substance: NILOTINIB
     Dosage: 200 MG, QID (FOUR TIMES A DAY)
     Route: 048
     Dates: start: 20180831
  2. TASIGNA [Suspect]
     Active Substance: NILOTINIB
     Indication: CHRONIC MYELOID LEUKAEMIA
     Dosage: 150 MG, QID (FOUR TIMES A DAY)
     Route: 048
     Dates: start: 20180622, end: 20180825

REACTIONS (3)
  - White blood cell count increased [Not Recovered/Not Resolved]
  - Inappropriate schedule of product administration [Unknown]
  - Blast crisis in myelogenous leukaemia [Unknown]

NARRATIVE: CASE EVENT DATE: 20180622
